FAERS Safety Report 10306123 (Version 3)
Quarter: 2014Q3

REPORT INFORMATION
  Report Type: Spontaneous
  Country: PE (occurrence: PE)
  Receive Date: 20140715
  Receipt Date: 20140813
  Transmission Date: 20150326
  Serious: Yes (Death, Hospitalization, Other)
  Sender: FDA-Public Use
  Company Number: PE-PFIZER INC-2014195569

PATIENT
  Age: 88 Year
  Sex: Female

DRUGS (1)
  1. ZOLOFT [Suspect]
     Active Substance: SERTRALINE HYDROCHLORIDE
     Indication: DEPRESSION
     Dosage: 50 MG, 1X/DAY, ONE TABLET PER DAY
     Route: 048
     Dates: start: 2006, end: 20140226

REACTIONS (7)
  - Infection [Fatal]
  - Apathy [Unknown]
  - Cough [Unknown]
  - Pneumonia [Unknown]
  - Decreased appetite [Unknown]
  - Pyrexia [Unknown]
  - Myocardial infarction [Fatal]

NARRATIVE: CASE EVENT DATE: 201402
